FAERS Safety Report 5283846-X (Version None)
Quarter: 2007Q2

REPORT INFORMATION
  Report Type: 
  Country: None (occurrence: None)
  Receive Date: 20070402
  Receipt Date: 20070323
  Transmission Date: 20071010
  Serious: Yes (Other)
  Sender: FDA-Public Use
  Company Number: CA-ABBOTT-07P-028-0362849-00

PATIENT
  Sex: Male

DRUGS (1)
  1. LIPIDIL EZ [Suspect]
     Indication: DRUG USE FOR UNKNOWN INDICATION
     Route: 065

REACTIONS (5)
  - ANGIOEDEMA [None]
  - GENITAL DISORDER MALE [None]
  - LIP SWELLING [None]
  - LOCAL SWELLING [None]
  - THROAT TIGHTNESS [None]
